FAERS Safety Report 8987055 (Version 1)
Quarter: 2012Q4

REPORT INFORMATION
  Report Type: 
  Country: US (occurrence: US)
  Receive Date: 20121226
  Receipt Date: 20121226
  Transmission Date: 20130627
  Serious: Yes (Other)
  Sender: FDA-Public Use
  Company Number: CHPA2012US025341

PATIENT
  Age: 87 Year
  Sex: Female

DRUGS (1)
  1. NUPERCAINAL HEMORRHOIDAL/ANES OINTMENT [Suspect]
     Indication: PAIN
     Dosage: Unk, Unk
     Route: 061

REACTIONS (2)
  - Neoplasm malignant [Recovered/Resolved]
  - Brain cancer metastatic [Not Recovered/Not Resolved]
